FAERS Safety Report 18391349 (Version 3)
Quarter: 2020Q4

REPORT INFORMATION
  Report Type: Spontaneous
  Country: BE (occurrence: BE)
  Receive Date: 20201016
  Receipt Date: 20201217
  Transmission Date: 20210114
  Serious: Yes (Hospitalization, Congenital Anomaly)
  Sender: FDA-Public Use
  Company Number: BE-TEVA-2020-BE-1840069

PATIENT
  Age: 33 Year
  Sex: Female
  Weight: 62 kg

DRUGS (2)
  1. AJOVY [Suspect]
     Active Substance: FREMANEZUMAB-VFRM
     Indication: MIGRAINE
     Route: 058
     Dates: start: 20200710
  2. NUVARING [Concomitant]
     Active Substance: ETHINYL ESTRADIOL\ETONOGESTREL
     Dates: start: 20200729

REACTIONS (11)
  - Visual impairment [Recovered/Resolved]
  - Magnetic resonance imaging abnormal [Recovered/Resolved]
  - Paraesthesia [Unknown]
  - Ischaemic stroke [Unknown]
  - Sensory disturbance [Recovered/Resolved]
  - NIH stroke scale score increased [Recovered/Resolved]
  - Paraesthesia [Recovered/Resolved]
  - Cerebral disorder [Recovered/Resolved]
  - Atrial septal defect [Recovered/Resolved]
  - Headache [Recovered/Resolved]
  - Cerebral microembolism [Recovered/Resolved]

NARRATIVE: CASE EVENT DATE: 202008
